FAERS Safety Report 5599577-2 (Version None)
Quarter: 2008Q1

REPORT INFORMATION
  Report Type: 
  Country: None (occurrence: None)
  Receive Date: 20080123
  Receipt Date: 20080112
  Transmission Date: 20080703
  Serious: Yes (Hospitalization)
  Sender: FDA-Public Use
  Company Number: PHHO2008US00867

PATIENT
  Age: 67 Year
  Sex: Female
  Weight: 59 kg

DRUGS (6)
  1. MYCOPHENOLATE MOFETIL [Suspect]
     Indication: HEART TRANSPLANT
     Dosage: 0.75 MG, BID
     Route: 048
     Dates: start: 20071224, end: 20080110
  2. BACTRIM [Concomitant]
  3. VALCYTE [Concomitant]
  4. PREDNISONE TAB [Concomitant]
  5. INSULIN [Concomitant]
  6. NEORAL [Suspect]
     Indication: HEART TRANSPLANT

REACTIONS (7)
  - DISEASE PROGRESSION [None]
  - HYPERGLYCAEMIA [None]
  - PERICARDIAL DRAINAGE [None]
  - PERICARDIAL EFFUSION [None]
  - PRODUCTIVE COUGH [None]
  - TROPONIN INCREASED [None]
  - VISION BLURRED [None]
